FAERS Safety Report 5074844-X (Version None)
Quarter: 2006Q3

REPORT INFORMATION
  Report Type: 
  Country: None (occurrence: None)
  Receive Date: 20060804
  Receipt Date: 20060726
  Transmission Date: 20061208
  Serious: Yes (Other)
  Sender: FDA-Public Use
  Company Number: 2006-06-2113

PATIENT
  Age: 49 Year
  Sex: Female
  Weight: 80.2867 kg

DRUGS (7)
  1. PEG-INTRON [Suspect]
     Indication: HEPATITIS C
     Dosage: 120 MCG QWK SUBCUTANEOUS
     Route: 058
     Dates: start: 20051222
  2. REBETOL [Suspect]
     Indication: HEPATITIS C
     Dosage: 1000 MG QD ORAL
     Route: 048
     Dates: start: 20051222
  3. EFFEXOR [Suspect]
     Indication: DEPRESSION
     Dosage: 37.5 MG QD
     Route: 048
     Dates: start: 20060502, end: 20060503
  4. LEXAPRO [Suspect]
     Indication: STRESS
  5. PROTONIX [Concomitant]
  6. ASPIRIN [Concomitant]
  7. ADVIL [Concomitant]

REACTIONS (19)
  - BLISTER [None]
  - BLOOD THYROID STIMULATING HORMONE INCREASED [None]
  - DEPRESSION [None]
  - DIARRHOEA [None]
  - DRUG HYPERSENSITIVITY [None]
  - FLUID INTAKE REDUCED [None]
  - GOITRE [None]
  - HEADACHE [None]
  - HEART RATE INCREASED [None]
  - HYPOTHYROIDISM [None]
  - IMPAIRED WORK ABILITY [None]
  - NECK PAIN [None]
  - ORAL INTAKE REDUCED [None]
  - SOMNOLENCE [None]
  - STRESS [None]
  - THROAT IRRITATION [None]
  - ULCER [None]
  - URTICARIA [None]
  - VOMITING [None]
